FAERS Safety Report 6387120-X (Version None)
Quarter: 2009Q4

REPORT INFORMATION
  Report Type: 
  Country: None (occurrence: None)
  Receive Date: 20091002
  Receipt Date: 20090925
  Transmission Date: 20100525
  Serious: Yes (Other)
  Sender: FDA-Public Use
  Company Number: FR-BAYER-200933637GPV

PATIENT
  Age: 85 Year
  Sex: Female

DRUGS (7)
  1. CIFLOX [Suspect]
     Indication: BACTERIAL PYELONEPHRITIS
     Dosage: TOTAL DAILY DOSE: 500 MG  UNIT DOSE: 500 MG
     Route: 048
     Dates: start: 20090821, end: 20090826
  2. AMLOR [Concomitant]
     Indication: DRUG USE FOR UNKNOWN INDICATION
     Route: 065
  3. NEXIUM [Concomitant]
     Indication: DRUG USE FOR UNKNOWN INDICATION
     Route: 065
  4. TRANSIPEG [Concomitant]
     Indication: DRUG USE FOR UNKNOWN INDICATION
     Route: 065
  5. HYPERIUM [Concomitant]
     Indication: DRUG USE FOR UNKNOWN INDICATION
     Route: 065
  6. ROCEPHIN [Concomitant]
     Indication: BACTERIAL PYELONEPHRITIS
     Route: 042
     Dates: start: 20090101, end: 20090801
  7. ROCEPHIN [Concomitant]
     Route: 042
     Dates: start: 20090826

REACTIONS (2)
  - CATATONIA [None]
  - DEPRESSION [None]
